FAERS Safety Report 5189532-9 (Version None)
Quarter: 2006Q4

REPORT INFORMATION
  Report Type: 
  Country: None (occurrence: None)
  Receive Date: 20061215
  Receipt Date: 20061201
  Transmission Date: 20070319
  Serious: Yes (Hospitalization)
  Sender: FDA-Public Use
  Company Number: T200601395

PATIENT
  Age: 25 Year
  Sex: Female

DRUGS (1)
  1. HEXABRIX [Suspect]
     Indication: ARTHROGRAM
     Dosage: SINGLE, INTRA-ARTICULAR
     Route: 014
     Dates: start: 20061109, end: 20061109

REACTIONS (4)
  - CYANOSIS [None]
  - DYSPNOEA [None]
  - ERYTHEMA [None]
  - PAIN [None]
